FAERS Safety Report 8168237-6 (Version None)
Quarter: 2012Q1

REPORT INFORMATION
  Report Type: 
  Country: None (occurrence: None)
  Receive Date: 20120227
  Receipt Date: 20120223
  Transmission Date: 20120608
  Serious: Yes (Life-Threatening, Other)
  Sender: FDA-Public Use
  Company Number: PHHY2011CA102155

PATIENT
  Sex: Male

DRUGS (3)
  1. CLOZARIL [Suspect]
     Indication: SCHIZOPHRENIA
     Dosage: 500 MG, UNK
     Route: 048
     Dates: start: 20060427, end: 20111101
  2. CLOPIXOL [Concomitant]
     Dosage: 20 MG, QHS
  3. CELEXA [Concomitant]
     Dosage: 60 MG, UNK

REACTIONS (3)
  - NEUROPATHY PERIPHERAL [None]
  - SUICIDE ATTEMPT [None]
  - POISONING [None]
